FAERS Safety Report 16717120 (Version 1)
Quarter: 2019Q3

REPORT INFORMATION
  Report Type: Spontaneous
  Country: SE (occurrence: SE)
  Receive Date: 20190819
  Receipt Date: 20190819
  Transmission Date: 20191005
  Serious: Yes (Other)
  Sender: FDA-Public Use
  Company Number: SE-MYLANLABS-2019M1076805

PATIENT
  Age: 61 Year
  Sex: Male

DRUGS (6)
  1. CLOPIDOGREL [Concomitant]
     Active Substance: CLOPIDOGREL BISULFATE
     Dates: start: 2009, end: 2019
  2. PANTOPRAZOL                        /01263201/ [Concomitant]
     Active Substance: PANTOPRAZOLE
     Dosage: UNK
  3. LOSARTAN AND HYDROCHLOROTHIAZIDE [Concomitant]
     Active Substance: HYDROCHLOROTHIAZIDE\LOSARTAN POTASSIUM
     Dosage: UNK
     Dates: start: 2009, end: 2019
  4. ALVEDON [Concomitant]
     Active Substance: ACETAMINOPHEN
     Dosage: UNK
     Dates: start: 2009
  5. DOLCONTIN UNOTARD /00036306/ [Suspect]
     Active Substance: MORPHINE SULFATE
     Indication: NEURALGIA
     Dosage: 60 MILLIGRAM, TID
     Route: 048
     Dates: start: 2009
  6. MORPHINE [Suspect]
     Active Substance: MORPHINE
     Indication: NEURALGIA
     Dosage: 20 MILLIGRAM, QD
     Route: 048
     Dates: start: 2009

REACTIONS (2)
  - Mental disorder [Not Recovered/Not Resolved]
  - Behaviour disorder [Not Recovered/Not Resolved]

NARRATIVE: CASE EVENT DATE: 20181213
